FAERS Safety Report 9789130 (Version 2)
Quarter: 2014Q1

REPORT INFORMATION
  Report Type: Spontaneous
  Country: US (occurrence: US)
  Receive Date: 20131230
  Receipt Date: 20140130
  Transmission Date: 20141002
  Serious: No
  Sender: FDA-Public Use
  Company Number: US-TEVA-450102USA

PATIENT
  Sex: 0

DRUGS (4)
  1. PROAIR HFA [Suspect]
     Route: 055
  2. LOSARTAN POTASSIUM W/HYDROCHLOROTHIAZIDE [Concomitant]
     Dosage: 100/25
  3. QVAR [Concomitant]
  4. PREDNISONE [Concomitant]

REACTIONS (1)
  - Drug ineffective [Recovered/Resolved]
